FAERS Safety Report 8246412-X (Version None)
Quarter: 2012Q1

REPORT INFORMATION
  Report Type: 
  Country: None (occurrence: None)
  Receive Date: 20120330
  Receipt Date: 20120315
  Transmission Date: 20120608
  Serious: Yes (Other)
  Sender: FDA-Public Use
  Company Number: GB-PFIZER INC-2012049451

PATIENT
  Age: 75 Year
  Sex: Male

DRUGS (12)
  1. ATORVASTATIN [Suspect]
     Dosage: UNK
  2. VERAPAMIL [Suspect]
     Indication: ATRIAL FIBRILLATION
     Dosage: UNK
  3. SYMBICORT [Concomitant]
  4. PREDNISOLONE [Suspect]
     Indication: CHRONIC OBSTRUCTIVE PULMONARY DISEASE
     Dosage: UNK
  5. METFORMIN HCL [Suspect]
     Dosage: UNK
  6. SPIRIVA [Concomitant]
  7. WARFARIN SODIUM [Suspect]
     Indication: ATRIAL FIBRILLATION
     Dosage: UNK
  8. ALBUTEROL [Suspect]
     Dosage: UNK
  9. CYSTEINE HYDROCHLORIDE [Suspect]
     Dosage: UNK
  10. FUROSEMIDE [Suspect]
     Dosage: UNK
  11. RAMIPRIL [Suspect]
     Dosage: 5 MG, DAILY
  12. FORMOTEROL FUMARATE [Suspect]
     Dosage: UNK
     Route: 055

REACTIONS (1)
  - HALLUCINATION [None]
